FAERS Safety Report 14342943 (Version 2)
Quarter: 2018Q1

REPORT INFORMATION
  Report Type: Spontaneous
  Country: JP (occurrence: JP)
  Receive Date: 20180102
  Receipt Date: 20180131
  Transmission Date: 20180509
  Serious: Yes (Other)
  Sender: FDA-Public Use
  Company Number: JP-JNJFOC-20171238633

PATIENT
  Age: 68 Year
  Sex: Male

DRUGS (5)
  1. REBAMIPIDE [Concomitant]
     Active Substance: REBAMIPIDE
     Route: 065
  2. TRAMCET [Suspect]
     Active Substance: ACETAMINOPHEN\TRAMADOL
     Indication: PAIN
     Route: 048
     Dates: start: 20170622
  3. MECOBALAMIN [Concomitant]
     Active Substance: METHYLCOBALAMIN
     Route: 065
  4. LOXONIN [Concomitant]
     Active Substance: LOXOPROFEN SODIUM
     Route: 065
  5. TRAMCET [Suspect]
     Active Substance: ACETAMINOPHEN\TRAMADOL
     Indication: PAIN
     Route: 048
     Dates: start: 201606, end: 201607

REACTIONS (1)
  - Erythema multiforme [Unknown]
